FAERS Safety Report 6504605-3 (Version None)
Quarter: 2009Q4

REPORT INFORMATION
  Report Type: 
  Country: None (occurrence: None)
  Receive Date: 20091215
  Receipt Date: 20091204
  Transmission Date: 20100525
  Serious: Yes (Hospitalization)
  Sender: FDA-Public Use
  Company Number: 2009AC000482

PATIENT
  Age: 88 Year
  Sex: Female

DRUGS (12)
  1. DIGOXIN [Suspect]
     Dosage: 0.25 MG; PO
     Route: 048
     Dates: start: 20080808
  2. DIGOXIN [Suspect]
     Dosage: 0.125 MG; PO
     Route: 048
     Dates: start: 20080501
  3. PRAVASTATIN SODIUM [Concomitant]
  4. METFORMIN [Concomitant]
  5. LEVOTHYROXINE SODIUM [Concomitant]
  6. LYRICA [Concomitant]
  7. NORVASC [Concomitant]
  8. METOPROLOL [Concomitant]
  9. MAGNESIUM [Concomitant]
  10. CLINDAMYCIN [Concomitant]
  11. ZOSTAVAX [Concomitant]
  12. POTASSIUM CHLORIDE [Concomitant]

REACTIONS (19)
  - ANHEDONIA [None]
  - ANORECTAL DISORDER [None]
  - ATELECTASIS [None]
  - ATRIAL FIBRILLATION [None]
  - CEREBRAL ISCHAEMIA [None]
  - DIZZINESS [None]
  - ECONOMIC PROBLEM [None]
  - LACUNAR INFARCTION [None]
  - MENTAL DISORDER [None]
  - MITRAL VALVE DISEASE [None]
  - MULTIPLE INJURIES [None]
  - NAUSEA [None]
  - NEPHROLITHIASIS [None]
  - NODULE [None]
  - PAIN [None]
  - PULMONARY OEDEMA [None]
  - RENAL IMPAIRMENT [None]
  - SOCIAL PROBLEM [None]
  - SURGERY [None]
